FAERS Safety Report 8188918-8 (Version None)
Quarter: 2012Q1

REPORT INFORMATION
  Report Type: 
  Country: None (occurrence: None)
  Receive Date: 20120306
  Receipt Date: 20120228
  Transmission Date: 20120608
  Serious: No
  Sender: FDA-Public Use
  Company Number: US-ASTRAZENECA-2011SE00611

PATIENT
  Age: 77 Year
  Sex: Female

DRUGS (2)
  1. CRESTOR [Suspect]
     Route: 048
     Dates: start: 20110101
  2. LISINOPRIL [Suspect]
     Route: 048
     Dates: start: 20110101

REACTIONS (2)
  - WEIGHT INCREASED [None]
  - BLOOD CHOLESTEROL INCREASED [None]
